FAERS Safety Report 6956904-9 (Version None)
Quarter: 2010Q3

REPORT INFORMATION
  Report Type: 
  Country: None (occurrence: None)
  Receive Date: 20100830
  Receipt Date: 20100707
  Transmission Date: 20110219
  Serious: No
  Sender: FDA-Public Use
  Company Number: US-ALLERGAN-1008801US

PATIENT
  Age: 89 Year
  Sex: Female

DRUGS (1)
  1. SANCTURA XR [Suspect]
     Indication: INCONTINENCE
     Dosage: 60 MG, QD
     Route: 048
     Dates: start: 20100701

REACTIONS (1)
  - URINARY INCONTINENCE [None]
